FAERS Safety Report 25134023 (Version 2)
Quarter: 2025Q2

REPORT INFORMATION
  Report Type: Spontaneous
  Country: JP (occurrence: JP)
  Receive Date: 20250328
  Receipt Date: 20250421
  Transmission Date: 20250717
  Serious: Yes (Other)
  Sender: ASTELLAS
  Company Number: JP-ASTELLAS-2025-AER-017148

PATIENT
  Age: 8 Decade
  Sex: Male

DRUGS (1)
  1. VYLOY [Suspect]
     Active Substance: ZOLBETUXIMAB-CLZB
     Indication: Gastric cancer
     Route: 065
     Dates: start: 20250205, end: 20250226

REACTIONS (2)
  - Malignant neoplasm progression [Unknown]
  - General physical health deterioration [Unknown]
